FAERS Safety Report 5410829-9 (Version None)
Quarter: 2007Q3

REPORT INFORMATION
  Report Type: 
  Country: None (occurrence: None)
  Receive Date: 20070810
  Receipt Date: 20070731
  Transmission Date: 20080115
  Serious: Yes (Other)
  Sender: FDA-Public Use
  Company Number: US-JNJFOC-20070800045

PATIENT
  Age: 49 Year
  Sex: Male

DRUGS (8)
  1. PREZISTA [Suspect]
     Indication: HIV INFECTION
     Route: 048
  2. RITONAVIR [Suspect]
     Indication: HIV INFECTION
     Route: 048
  3. MK0518 [Suspect]
     Route: 048
  4. MK0518 [Suspect]
     Indication: HIV INFECTION
     Route: 048
  5. TRUVADA [Suspect]
     Route: 048
  6. TRUVADA [Suspect]
     Indication: HIV INFECTION
     Route: 048
  7. LEVITRA [Concomitant]
     Indication: DRUG USE FOR UNKNOWN INDICATION
     Route: 065
  8. NASAREL [Concomitant]
     Indication: RHINITIS ALLERGIC
     Dosage: 1-2 DOSES TWICE /DAY
     Route: 061

REACTIONS (1)
  - HEPATITIS [None]
